FAERS Safety Report 8035162-0 (Version None)
Quarter: 2012Q1

REPORT INFORMATION
  Report Type: 
  Country: None (occurrence: None)
  Receive Date: 20120111
  Receipt Date: 20120103
  Transmission Date: 20120608
  Serious: No
  Sender: FDA-Public Use
  Company Number: US-BIOGENIDEC-2012BI000590

PATIENT
  Age: 42 Year
  Sex: Female

DRUGS (2)
  1. AVONEX [Suspect]
     Route: 030
     Dates: start: 20100701, end: 20100831
  2. AVONEX [Suspect]
     Indication: MULTIPLE SCLEROSIS
     Route: 030
     Dates: start: 20101111

REACTIONS (11)
  - NERVOUS SYSTEM DISORDER [None]
  - FALL [None]
  - INFLUENZA LIKE ILLNESS [None]
  - MOBILITY DECREASED [None]
  - GAIT DISTURBANCE [None]
  - ULTRASOUND BREAST ABNORMAL [None]
  - MAMMOGRAM ABNORMAL [None]
  - BREAST NEOPLASM [None]
  - BURNING SENSATION [None]
  - BREAST MASS [None]
  - GENERAL SYMPTOM [None]
